FAERS Safety Report 9112796 (Version 1)
Quarter: 2013Q1

REPORT INFORMATION
  Report Type: Report from Study
  Country: US (occurrence: US)
  Receive Date: 20130211
  Receipt Date: 20130211
  Transmission Date: 20140127
  Serious: Yes (Death)
  Sender: FDA-Public Use
  Company Number: US-ROCHE-1086344

PATIENT
  Age: 81 Year
  Sex: Male
  Weight: 62.65 kg

DRUGS (2)
  1. XELODA [Suspect]
     Indication: COLORECTAL CANCER METASTATIC
     Route: 048
     Dates: start: 20120701
  2. XELODA [Suspect]
     Route: 048
     Dates: start: 20120702

REACTIONS (2)
  - Death [Fatal]
  - Vomiting [Recovered/Resolved]
